FAERS Safety Report 25766536 (Version 2)
Quarter: 2025Q3

REPORT INFORMATION
  Report Type: Report from Study
  Country: US (occurrence: US)
  Receive Date: 20250905
  Receipt Date: 20250919
  Transmission Date: 20251020
  Serious: Yes (Other)
  Sender: INSMED
  Company Number: US-INSMED, INC.-2025-02550-US

PATIENT
  Sex: Female

DRUGS (2)
  1. ARIKAYCE [Suspect]
     Active Substance: AMIKACIN
     Indication: Mycobacterium avium complex infection
     Dosage: 590 MILLIGRAM, QD
     Route: 055
     Dates: start: 2025
  2. HUMAN IMMUNOGLOBULIN G [Concomitant]
     Active Substance: HUMAN IMMUNOGLOBULIN G
     Indication: Product used for unknown indication
     Route: 042

REACTIONS (27)
  - Oxygen saturation decreased [Unknown]
  - Somnolence [Not Recovered/Not Resolved]
  - Secretion discharge [Unknown]
  - Otorrhoea [Unknown]
  - Influenza like illness [Not Recovered/Not Resolved]
  - Breast pain [Unknown]
  - Drug intolerance [Unknown]
  - Ear disorder [Unknown]
  - Ear pain [Unknown]
  - Stomatitis [Not Recovered/Not Resolved]
  - Glossodynia [Unknown]
  - Glossitis [Not Recovered/Not Resolved]
  - Sputum increased [Unknown]
  - Productive cough [Recovered/Resolved]
  - Dysgeusia [Recovered/Resolved]
  - Productive cough [Not Recovered/Not Resolved]
  - Throat irritation [Not Recovered/Not Resolved]
  - Cough [Not Recovered/Not Resolved]
  - Fatigue [Unknown]
  - Dysgeusia [Unknown]
  - Dysphonia [Unknown]
  - Oropharyngeal pain [Unknown]
  - Dry mouth [Unknown]
  - Oral pain [Unknown]
  - Dyspnoea [Unknown]
  - Hypoacusis [Unknown]
  - Rash [Unknown]

NARRATIVE: CASE EVENT DATE: 20250101
